FAERS Safety Report 6087429-3 (Version None)
Quarter: 2009Q1

REPORT INFORMATION
  Report Type: 
  Country: None (occurrence: None)
  Receive Date: 20090223
  Receipt Date: 20090217
  Transmission Date: 20090719
  Serious: Yes (Other)
  Sender: FDA-Public Use
  Company Number: US-MERCK-0810USA01659

PATIENT
  Age: 84 Year
  Sex: Male
  Weight: 72 kg

DRUGS (10)
  1. JANUVIA [Suspect]
     Indication: TYPE 2 DIABETES MELLITUS
     Route: 048
     Dates: start: 20080819, end: 20081008
  2. PLAVIX [Concomitant]
     Route: 065
  3. METFORMIN [Concomitant]
     Route: 065
  4. TOPROL-XL [Concomitant]
     Route: 065
  5. ISOSORBIDE [Concomitant]
     Route: 065
  6. NEXIUM [Concomitant]
     Route: 065
  7. DOXAZOSIN MESYLATE [Concomitant]
     Route: 065
  8. DIOVAN [Concomitant]
     Route: 065
  9. SIMVASTATIN [Concomitant]
     Route: 065
  10. GLUCOTROL [Concomitant]
     Route: 065

REACTIONS (17)
  - ABNORMAL BEHAVIOUR [None]
  - ADVERSE DRUG REACTION [None]
  - AGITATION [None]
  - AGORAPHOBIA [None]
  - ANOREXIA [None]
  - ASTHENIA [None]
  - CHEST PAIN [None]
  - DELUSIONAL DISORDER, PERSECUTORY TYPE [None]
  - DIZZINESS [None]
  - ERYTHEMA [None]
  - HAEMORRHOIDS [None]
  - MALAISE [None]
  - NASAL CONGESTION [None]
  - NASAL DRYNESS [None]
  - PANIC ATTACK [None]
  - SUICIDAL IDEATION [None]
  - WEIGHT DECREASED [None]
